FAERS Safety Report 25811141 (Version 3)
Quarter: 2025Q4

REPORT INFORMATION
  Report Type: Spontaneous
  Country: US (occurrence: US)
  Receive Date: 20250917
  Receipt Date: 20251015
  Transmission Date: 20260118
  Serious: No
  Sender: BRISTOL-MYERS SQUIBB COMPANY
  Company Number: US-BRISTOL-MYERS SQUIBB COMPANY-2025-127974

PATIENT
  Age: 87 Year
  Sex: Female
  Weight: 73.03 kg

DRUGS (2)
  1. POMALYST [Suspect]
     Active Substance: POMALIDOMIDE
     Indication: Plasma cell myeloma
     Dosage: DAILY FOR 2 DAYS, THEN TAKE 1 DAY OFF AND REPEAT
  2. POMALYST [Suspect]
     Active Substance: POMALIDOMIDE

REACTIONS (5)
  - Diarrhoea [Recovering/Resolving]
  - Dyspepsia [Recovering/Resolving]
  - Gastrointestinal sounds abnormal [Recovering/Resolving]
  - Constipation [Not Recovered/Not Resolved]
  - Faeces pale [Not Recovered/Not Resolved]
